FAERS Safety Report 6352991-X (Version None)
Quarter: 2009Q3

REPORT INFORMATION
  Report Type: 
  Country: None (occurrence: None)
  Receive Date: 20090912
  Receipt Date: 20090622
  Transmission Date: 20100115
  Serious: No
  Sender: FDA-Public Use
  Company Number: US-ABBOTT-08P-163-0451650-00

PATIENT
  Sex: Male
  Weight: 100.79 kg

DRUGS (4)
  1. HUMIRA [Suspect]
     Indication: ANKYLOSING SPONDYLITIS
     Route: 050
     Dates: start: 20080513
  2. CELECOXIB [Concomitant]
     Indication: INFLAMMATION
     Route: 048
  3. HYDROCODONE BITARTRATE [Concomitant]
     Indication: PAIN
     Route: 048
  4. BACLOFEN [Concomitant]
     Indication: PAIN
     Dosage: 1 MORNING DEPENDS ON WHETHER OR NOT HYDROCODONE WORKING
     Route: 048

REACTIONS (2)
  - DRUG DELIVERY SYSTEM MALFUNCTION [None]
  - INCORRECT DOSE ADMINISTERED [None]
